FAERS Safety Report 7093534-5 (Version None)
Quarter: 2010Q4

REPORT INFORMATION
  Report Type: 
  Country: None (occurrence: None)
  Receive Date: 20101110
  Receipt Date: 20101103
  Transmission Date: 20110411
  Serious: Yes (Hospitalization)
  Sender: FDA-Public Use
  Company Number: DE-ABBOTT-10P-062-0684030-00

PATIENT
  Sex: Male

DRUGS (2)
  1. ENANTONE MONATSDEPOT [Suspect]
     Indication: PROSTATE CANCER
     Route: 058
  2. TRENANTONE [Suspect]
     Indication: PROSTATE CANCER
     Route: 058
     Dates: end: 20090501

REACTIONS (1)
  - CORONARY ARTERY DISEASE [None]
